FAERS Safety Report 23153740 (Version 4)
Quarter: 2024Q1

REPORT INFORMATION
  Report Type: Spontaneous
  Country: US (occurrence: US)
  Receive Date: 20231107
  Receipt Date: 20240110
  Transmission Date: 20240409
  Serious: No
  Sender: FDA-Public Use
  Company Number: US-PFIZER INC-PV202300172673

PATIENT
  Age: 12 Year
  Sex: Male

DRUGS (2)
  1. GENOTROPIN [Suspect]
     Active Substance: SOMATROPIN
     Dosage: 1.4 MG, ALTERNATE DAY,(ALTERNATE 1.4 + 1.6 MG DAILY)
  2. GENOTROPIN [Suspect]
     Active Substance: SOMATROPIN
     Dosage: 1.6 MG, ALTERNATE DAY,(ALTERNATE 1.4 + 1.6 MG DAILY)

REACTIONS (2)
  - Expired device used [Unknown]
  - Drug dose omission by device [Unknown]

NARRATIVE: CASE EVENT DATE: 20231016
